FAERS Safety Report 20759616 (Version 1)
Quarter: 2022Q2

REPORT INFORMATION
  Report Type: Spontaneous
  Country: US (occurrence: US)
  Receive Date: 20220427
  Receipt Date: 20220427
  Transmission Date: 20220720
  Serious: No
  Sender: FDA-Public Use
  Company Number: US-BioHaven Pharmaceuticals-2021BHV003029

PATIENT
  Age: 47 Year
  Sex: Female

DRUGS (1)
  1. NURTEC ODT [Suspect]
     Active Substance: RIMEGEPANT SULFATE
     Indication: Product used for unknown indication
     Dosage: SHE STARTED NURTEC IN EARLY SEP-2021
     Route: 065
     Dates: start: 202109, end: 20210930

REACTIONS (2)
  - Drug ineffective [Unknown]
  - Fatigue [Unknown]
